FAERS Safety Report 19195049 (Version 10)
Quarter: 2021Q4

REPORT INFORMATION
  Report Type: Spontaneous
  Country: US (occurrence: US)
  Receive Date: 20210429
  Receipt Date: 20211207
  Transmission Date: 20220303
  Serious: Yes (Hospitalization, Other)
  Sender: FDA-Public Use
  Company Number: US-GLAXOSMITHKLINE-US2021AMR093204

PATIENT
  Age: 47 Year
  Sex: Female

DRUGS (5)
  1. FLOLAN [Suspect]
     Active Substance: EPOPROSTENOL SODIUM
     Indication: Pulmonary arterial hypertension
     Dosage: 18 DF, CO, 18 NG/KG/MIN
     Dates: start: 20170203
  2. GLYCINE\MANNITOL\SODIUM CHLORIDE [Suspect]
     Active Substance: GLYCINE\MANNITOL\SODIUM CHLORIDE
     Indication: Pulmonary arterial hypertension
     Dosage: UNK
     Dates: start: 20170203
  3. GLYCINE\MANNITOL\SODIUM CHLORIDE [Suspect]
     Active Substance: GLYCINE\MANNITOL\SODIUM CHLORIDE
     Dosage: UNK
  4. GLYCINE\MANNITOL\SODIUM CHLORIDE [Suspect]
     Active Substance: GLYCINE\MANNITOL\SODIUM CHLORIDE
     Dosage: UNK
     Dates: start: 20170203
  5. FLOLAN [Suspect]
     Active Substance: EPOPROSTENOL SODIUM
     Indication: Pulmonary arterial hypertension
     Dosage: 19 DF, CO, 19 NG/KG/MIN
     Dates: start: 20170203

REACTIONS (8)
  - Septic shock [Unknown]
  - Hospitalisation [Unknown]
  - Vascular device infection [Unknown]
  - Sepsis [Unknown]
  - Dyspnoea [Unknown]
  - Complication associated with device [Unknown]
  - Device connection issue [Unknown]
  - Catheter site swelling [Unknown]

NARRATIVE: CASE EVENT DATE: 20210717
